FAERS Safety Report 18109613 (Version 1)
Quarter: 2020Q3

REPORT INFORMATION
  Report Type: Spontaneous
  Country: KR (occurrence: KR)
  Receive Date: 20200804
  Receipt Date: 20200804
  Transmission Date: 20201103
  Serious: Yes (Other)
  Sender: FDA-Public Use
  Company Number: KR-ABBVIE-20K-090-3500816-00

PATIENT
  Age: 40 Year
  Sex: Female
  Weight: 65 kg

DRUGS (1)
  1. HUMIRA [Suspect]
     Active Substance: ADALIMUMAB
     Indication: COLITIS ULCERATIVE
     Dosage: ABOUT 2YEARS AND 6 MONTHS
     Route: 058

REACTIONS (11)
  - Deafness unilateral [Unknown]
  - Herpes zoster [Unknown]
  - Purulence [Unknown]
  - Chest pain [Unknown]
  - Secretion discharge [Unknown]
  - Painful respiration [Unknown]
  - Pain in extremity [Unknown]
  - Arthralgia [Unknown]
  - Angina pectoris [Unknown]
  - Neck pain [Unknown]
  - Dyspnoea [Unknown]

NARRATIVE: CASE EVENT DATE: 202005
